FAERS Safety Report 5878642-6 (Version None)
Quarter: 2008Q3

REPORT INFORMATION
  Report Type: 
  Country: None (occurrence: None)
  Receive Date: 20080909
  Receipt Date: 20080826
  Transmission Date: 20090109
  Serious: Yes (Life-Threatening)
  Sender: FDA-Public Use
  Company Number: 004201

PATIENT
  Age: 12 Year
  Sex: Female

DRUGS (8)
  1. BUSULFEX [Suspect]
     Indication: STEM CELL TRANSPLANT
     Dosage: 9 ML, DAILY DOSE    INTRAVENOUS; 18 ML, DAILY DOSE; INTRAVENOUS;  DF, DAILY DOSE; INTRAVENOUS
     Route: 042
     Dates: start: 20070516, end: 20070516
  2. BUSULFEX [Suspect]
     Indication: STEM CELL TRANSPLANT
     Dosage: 9 ML, DAILY DOSE    INTRAVENOUS; 18 ML, DAILY DOSE; INTRAVENOUS;  DF, DAILY DOSE; INTRAVENOUS
     Route: 042
     Dates: start: 20070517, end: 20070519
  3. BUSULFEX [Suspect]
     Indication: STEM CELL TRANSPLANT
     Dosage: 9 ML, DAILY DOSE    INTRAVENOUS; 18 ML, DAILY DOSE; INTRAVENOUS;  DF, DAILY DOSE; INTRAVENOUS
     Route: 042
     Dates: start: 20070520, end: 20070520
  4. MELPHALAN (MELPHALAN) [Concomitant]
  5. PHENYTOIN [Concomitant]
  6. FILGRASTIM (FILGRASTIM) [Concomitant]
  7. CYCLOSPORINE [Concomitant]
  8. METHYLPREDNISOLONE 16MG TAB [Concomitant]

REACTIONS (10)
  - ACUTE GRAFT VERSUS HOST DISEASE [None]
  - ANOREXIA [None]
  - BONE MARROW TRANSPLANT [None]
  - CLOSTRIDIAL INFECTION [None]
  - DIARRHOEA [None]
  - MALAISE [None]
  - NAUSEA [None]
  - RHABDOMYOSARCOMA RECURRENT [None]
  - STOMATITIS [None]
  - VOMITING [None]
